FAERS Safety Report 16959843 (Version 3)
Quarter: 2019Q4

REPORT INFORMATION
  Report Type: Report from Study
  Country: US (occurrence: US)
  Receive Date: 20191025
  Receipt Date: 20191118
  Transmission Date: 20200122
  Serious: Yes (Hospitalization)
  Sender: FDA-Public Use
  Company Number: NVSC2019US014929

PATIENT
  Sex: Female
  Weight: 62.59 kg

DRUGS (3)
  1. TREPROSTINIL. [Suspect]
     Active Substance: TREPROSTINIL
     Indication: PULMONARY ARTERIAL HYPERTENSION
     Dosage: 70/NG/KG/MIN, CONTINUOUS
     Route: 042
     Dates: start: 20190624
  2. TADALAFIL. [Concomitant]
     Active Substance: TADALAFIL
     Indication: PRODUCT USED FOR UNKNOWN INDICATION
     Route: 065
  3. TREPROSTINIL. [Suspect]
     Active Substance: TREPROSTINIL
     Dosage: 70/NG/KG/MIN, CONTINUOUS
     Route: 042
     Dates: start: 20190624

REACTIONS (4)
  - Hip fracture [Unknown]
  - Catheter site pruritus [Unknown]
  - Fall [Unknown]
  - Infusion site erythema [Unknown]
